FAERS Safety Report 18584580 (Version 1)
Quarter: 2020Q4

REPORT INFORMATION
  Report Type: Spontaneous
  Country: US (occurrence: US)
  Receive Date: 20201207
  Receipt Date: 20201207
  Transmission Date: 20210114
  Serious: No
  Sender: FDA-Public Use
  Company Number: US-MICRO LABS LIMITED-ML2020-03526

PATIENT
  Age: 76 Year
  Sex: Male
  Weight: 93.07 kg

DRUGS (11)
  1. DORZOLAMIDE/TIMOLOL [Suspect]
     Active Substance: DORZOLAMIDE\TIMOLOL
     Indication: GLAUCOMA
     Dosage: STRENGTH: 22.3 MG/6.8 MG PER ML
     Route: 047
     Dates: start: 20201109
  2. RESTASIS [Suspect]
     Active Substance: CYCLOSPORINE
     Indication: DRY EYE
  3. RESTASIS [Suspect]
     Active Substance: CYCLOSPORINE
     Indication: GLAUCOMA
     Route: 047
  4. REFRESH [Concomitant]
     Active Substance: UNSPECIFIED INGREDIENT
     Indication: DRY EYE
     Route: 047
  5. ALLERGAN [Concomitant]
     Active Substance: PAPAIN
     Indication: DRY EYE
     Route: 047
  6. FUROSEMIDE. [Concomitant]
     Active Substance: FUROSEMIDE
     Indication: PROSTATOMEGALY
     Dosage: SMALLEST DOSE 1 A DAY
     Route: 048
  7. SOTALOL. [Concomitant]
     Active Substance: SOTALOL
     Indication: HEART RATE IRREGULAR
     Dosage: 60 MG IN MORNING AND 30 MG IN AFTERNOON
     Route: 048
  8. LIPITOR [Concomitant]
     Active Substance: ATORVASTATIN CALCIUM
     Indication: BLOOD CHOLESTEROL INCREASED
     Route: 048
  9. TRAVATAN Z [Concomitant]
     Active Substance: TRAVOPROST
     Route: 047
  10. MYRBETRIQ [Concomitant]
     Active Substance: MIRABEGRON
     Route: 048
  11. FINASTERIDE. [Concomitant]
     Active Substance: FINASTERIDE
     Indication: PROSTATOMEGALY
     Route: 048

REACTIONS (2)
  - Eye irritation [Not Recovered/Not Resolved]
  - Product storage error [Unknown]

NARRATIVE: CASE EVENT DATE: 202011
